FAERS Safety Report 19828563 (Version 1)
Quarter: 2021Q3

REPORT INFORMATION
  Report Type: Spontaneous
  Country: CN (occurrence: CN)
  Receive Date: 20210914
  Receipt Date: 20210914
  Transmission Date: 20211014
  Serious: Yes (Other)
  Sender: FDA-Public Use
  Company Number: CN-ROCHE-2908700

PATIENT
  Age: 88 Year
  Sex: Male

DRUGS (7)
  1. AMBROXOL HYDROCHLORIDE [Concomitant]
     Active Substance: AMBROXOL HYDROCHLORIDE
     Route: 040
     Dates: start: 20210804, end: 20210810
  2. SODIUM CHLORIDE. [Concomitant]
     Active Substance: SODIUM CHLORIDE
     Dosage: LOT NO. 2102523, SOLVENT FOR AMBROXOL HYDROCHLORIDE INJECTION
     Route: 040
     Dates: start: 20210804, end: 20210810
  3. PIPERACILLIN AND TAZOBACTAM [Concomitant]
     Active Substance: PIPERACILLIN SODIUM\TAZOBACTAM SODIUM
     Indication: PNEUMONITIS
     Route: 041
     Dates: start: 20210804, end: 20210805
  4. MOXIFLOXACIN HYDROCHLORIDE AND SODIUM CHLORIDE [Suspect]
     Active Substance: MOXIFLOXACIN HYDROCHLORIDE
     Indication: PNEUMONITIS
     Route: 041
     Dates: start: 20210804, end: 20210809
  5. TAMIFLU [Suspect]
     Active Substance: OSELTAMIVIR PHOSPHATE
     Indication: VIRAL INFECTION
     Route: 048
     Dates: start: 20210804, end: 20210809
  6. SODIUM CHLORIDE. [Concomitant]
     Active Substance: SODIUM CHLORIDE
     Dosage: LOT NO. 21050801E, SOLVENT FOR PIPERACILLIN SODIUM AND TAZOBACTAM SODIUM FOR?INJECTION
     Route: 041
     Dates: start: 20210804, end: 20210805
  7. LANSOPRAZOLE. [Concomitant]
     Active Substance: LANSOPRAZOLE
     Route: 041
     Dates: start: 20210804, end: 20210805

REACTIONS (3)
  - Delirium [Recovered/Resolved]
  - Irritability [Recovered/Resolved]
  - Off label use [Unknown]

NARRATIVE: CASE EVENT DATE: 20210806
